FAERS Safety Report 25545399 (Version 2)
Quarter: 2025Q3

REPORT INFORMATION
  Report Type: Spontaneous
  Country: TR (occurrence: TR)
  Receive Date: 20250711
  Receipt Date: 20250813
  Transmission Date: 20251021
  Serious: Yes (Death, Other)
  Sender: PFIZER
  Company Number: TR-PFIZER INC-PV202500081579

PATIENT
  Age: 59 Year
  Sex: Female

DRUGS (1)
  1. ELREXFIO [Suspect]
     Active Substance: ELRANATAMAB-BCMM

REACTIONS (5)
  - Death [Fatal]
  - Sepsis [Unknown]
  - Plasmacytoma [Unknown]
  - Malignant neoplasm progression [Unknown]
  - Mass [Unknown]

NARRATIVE: CASE EVENT DATE: 20250708
